FAERS Safety Report 5077695-5 (Version None)
Quarter: 2006Q3

REPORT INFORMATION
  Report Type: 
  Country: None (occurrence: None)
  Receive Date: 20060810
  Receipt Date: 20050502
  Transmission Date: 20061208
  Serious: No
  Sender: FDA-Public Use
  Company Number: US-GLAXOSMITHKLINE-A0598075A

PATIENT
  Sex: Female

DRUGS (2)
  1. PAXIL [Suspect]
  2. PAXIL [Suspect]
     Dosage: 30MG PER DAY
     Route: 048

REACTIONS (2)
  - ANXIETY [None]
  - CONDITION AGGRAVATED [None]
